FAERS Safety Report 4332246-5 (Version None)
Quarter: 2004Q1

REPORT INFORMATION
  Report Type: 
  Country: None (occurrence: None)
  Receive Date: 20040331
  Receipt Date: 20040322
  Transmission Date: 20041129
  Serious: Yes (Hospitalization)
  Sender: FDA-Public Use
  Company Number: 2003188751JP

PATIENT
  Age: 45 Year
  Sex: Female

DRUGS (8)
  1. AZULFIDINE EN-TABS [Suspect]
     Indication: RHEUMATOID ARTHRITIS
     Dosage: 1000 MG/DAY, ORAL
     Route: 048
     Dates: start: 20031117, end: 20031201
  2. SAWACILLIN             (AMOXICILLIN TRIHYDRATE) [Suspect]
     Dosage: ORAL
     Route: 048
     Dates: start: 20031201, end: 20031202
  3. RIDAURA [Concomitant]
  4. PREDONINE [Concomitant]
  5. LOXONIN (LOXOPROFEN SODIUM) [Concomitant]
  6. FAMOTIDINE [Concomitant]
  7. SELBEX (TEPRENONE) [Concomitant]
  8. FERROMIA             (FERROUS CITRATE) [Concomitant]

REACTIONS (10)
  - ERYTHEMA [None]
  - FACE OEDEMA [None]
  - INTERSTITIAL LUNG DISEASE [None]
  - LEUKOPENIA [None]
  - NASOPHARYNGITIS [None]
  - PLEURAL EFFUSION [None]
  - PYREXIA [None]
  - RASH [None]
  - VIRAL INFECTION [None]
  - WHITE BLOOD CELL COUNT DECREASED [None]
